FAERS Safety Report 7457368-1 (Version None)
Quarter: 2011Q2

REPORT INFORMATION
  Report Type: 
  Country: None (occurrence: None)
  Receive Date: 20110502
  Receipt Date: 20110502
  Transmission Date: 20111010
  Serious: Yes (Hospitalization)
  Sender: FDA-Public Use
  Company Number: None

PATIENT
  Sex: Male
  Weight: 26.9 kg

DRUGS (5)
  1. LEVOTHYROXINE SODIUM [Concomitant]
  2. GENOTROPIN [Suspect]
     Indication: PRADER-WILLI SYNDROME
     Dosage: 0.4 MG 6 DAYS/WK SQ
     Route: 058
     Dates: start: 20040401, end: 20091201
  3. GENOTROPIN [Suspect]
     Indication: GROWTH RETARDATION
     Dosage: 0.4 MG 6 DAYS/WK SQ
     Route: 058
     Dates: start: 20040401, end: 20091201
  4. GENOTROPIN [Suspect]
     Indication: PRADER-WILLI SYNDROME
     Dosage: 0.4 MG 6 DAYS/WK SQ
     Route: 058
     Dates: start: 20100201
  5. GENOTROPIN [Suspect]
     Indication: GROWTH RETARDATION
     Dosage: 0.4 MG 6 DAYS/WK SQ
     Route: 058
     Dates: start: 20100201

REACTIONS (4)
  - DECREASED APPETITE [None]
  - PANCREATITIS [None]
  - PSEUDOCYST [None]
  - PYREXIA [None]
